FAERS Safety Report 9251924 (Version 10)
Quarter: 2022Q2

REPORT INFORMATION
  Report Type: Report from Study
  Country: IT (occurrence: IT)
  Receive Date: 20130424
  Receipt Date: 20220622
  Transmission Date: 20220720
  Serious: Yes (Death, Hospitalization, Other)
  Sender: FDA-Public Use
  Company Number: PHHY2013IT036568

PATIENT
  Age: 46 Year
  Sex: Female
  Weight: 55 kg

DRUGS (3)
  1. GILENYA [Suspect]
     Active Substance: FINGOLIMOD HYDROCHLORIDE
     Indication: Multiple sclerosis
     Dosage: 0.5 MG, QD
     Route: 048
     Dates: start: 20121024, end: 20130407
  2. LEVOTHYROXINE [Concomitant]
     Active Substance: LEVOTHYROXINE
     Indication: Autoimmune thyroiditis
     Route: 065
     Dates: start: 200807
  3. CITALOPRAM [Concomitant]
     Active Substance: CITALOPRAM HYDROBROMIDE
     Indication: Depression
     Route: 065
     Dates: start: 201003

REACTIONS (28)
  - Multiple organ dysfunction syndrome [Fatal]
  - General physical health deterioration [Fatal]
  - Interstitial lung disease [Fatal]
  - Gallbladder enlargement [Fatal]
  - Dysphagia [Fatal]
  - Pancreatitis [Fatal]
  - Lipase increased [Fatal]
  - Amylase increased [Fatal]
  - Diarrhoea [Fatal]
  - Vomiting [Fatal]
  - Nausea [Fatal]
  - Abdominal pain [Fatal]
  - Delirium [Fatal]
  - Disturbance in attention [Fatal]
  - Disseminated varicella [Fatal]
  - Erythema [Fatal]
  - Rash [Fatal]
  - Face oedema [Fatal]
  - Oral candidiasis [Fatal]
  - Hepatic enzyme increased [Fatal]
  - Respiratory failure [Fatal]
  - Dyspnoea at rest [Fatal]
  - Loss of consciousness [Fatal]
  - Blood pressure increased [Fatal]
  - Anuria [Fatal]
  - Lymphocyte count decreased [Unknown]
  - Multiple sclerosis relapse [Unknown]
  - Monoparesis [Unknown]

NARRATIVE: CASE EVENT DATE: 20121119
